FAERS Safety Report 18796815 (Version 1)
Quarter: 2021Q1

REPORT INFORMATION
  Report Type: Report from Study
  Country: None (occurrence: US)
  Receive Date: 20210128
  Receipt Date: 20210128
  Transmission Date: 20210419
  Serious: Yes (Hospitalization)
  Sender: FDA-Public Use
  Company Number: US-ABBVIE-21K-163-3744681-00

PATIENT
  Sex: Female

DRUGS (1)
  1. HUMIRA [Suspect]
     Active Substance: ADALIMUMAB
     Indication: PSORIASIS
     Route: 058
     Dates: end: 202012

REACTIONS (5)
  - Confusional state [Unknown]
  - Memory impairment [Unknown]
  - Cognitive disorder [Unknown]
  - Therapeutic product effect decreased [Not Recovered/Not Resolved]
  - Skin disorder [Not Recovered/Not Resolved]
